FAERS Safety Report 18351857 (Version 4)
Quarter: 2020Q4

REPORT INFORMATION
  Report Type: Spontaneous
  Country: JP (occurrence: JP)
  Receive Date: 20201006
  Receipt Date: 20201106
  Transmission Date: 20210114
  Serious: No
  Sender: FDA-Public Use
  Company Number: JP-PFIZER INC-2020385905

PATIENT
  Age: 76 Year
  Sex: Male

DRUGS (6)
  1. CELECOX [Suspect]
     Active Substance: CELECOXIB
     Dosage: 100 MG, TWICE DAILY, AFTER BREAKFAST AND SUPPER
     Route: 048
     Dates: start: 20200804, end: 20200909
  2. OPALMON [Concomitant]
     Active Substance: LIMAPROST
     Dosage: 15 MG/DAY, UNKNOWN FREQ.
     Route: 048
  3. LYRICA [Concomitant]
     Active Substance: PREGABALIN
     Dosage: 300 MG/DAY, UNKNOWN FREQ.
     Route: 048
  4. LOXONIN [Concomitant]
     Active Substance: LOXOPROFEN SODIUM
     Dosage: 100 MG/DAY, UNKNOWN FREQ.
     Route: 050
  5. CELECOX [Suspect]
     Active Substance: CELECOXIB
     Dosage: 100 MG, 2X/DAY
     Route: 048
     Dates: start: 20201007
  6. LENDORMIN [Concomitant]
     Active Substance: BROTIZOLAM
     Dosage: 0.25 MG/DAY, UNKNOWN FREQ.
     Route: 048

REACTIONS (1)
  - Chromaturia [Recovered/Resolved]

NARRATIVE: CASE EVENT DATE: 20200909
